FAERS Safety Report 10540374 (Version 1)
Quarter: 2014Q4

REPORT INFORMATION
  Report Type: Spontaneous
  Country: US (occurrence: None)
  Receive Date: 20141007
  Receipt Date: 20141007
  Transmission Date: 20150529
  Serious: Yes (Other)
  Sender: FDA-Public Use
  Company Number: 2042897

PATIENT
  Age: 74 Year
  Sex: Male
  Weight: 73.18 kg

DRUGS (9)
  1. (TOPROL) [Concomitant]
  2. (CLONAZEPAM) [Concomitant]
  3. (5-FU /00098801/) [Suspect]
     Active Substance: FLUOROURACIL
     Indication: OESOPHAGEAL CARCINOMA
     Dosage: UNKNOWN, 400 MG/M2 FOLLOWED BY 2400 MG/M2 OVER 46 HOURS (1 WEEK)?INTRAVENOUS (NOT OTHERWSIE SPECIFIED)
     Route: 042
     Dates: start: 20130722
  4. (TRASTUZUMAB) [Suspect]
     Active Substance: TRASTUZUMAB
     Indication: OESOPHAGEAL CARCINOMA
     Dosage: 6 MG/KG FOLLOWED BY 4 MG/KG, (1 WEEK), UNKNOWN
     Dates: start: 20130903
  5. OXALIPLATIN INJECTION (OXALIPLATIN) [Suspect]
     Active Substance: OXALIPLATIN
     Indication: OESOPHAGEAL CARCINOMA
     Dosage: 158 MG MILLIGRAM(S), 1 WEEK, INTRAVENOUS (NOT OTHERWISE SPECIFIED)
     Route: 042
     Dates: start: 20130722
  6. (FUSILEV) [Concomitant]
  7. (BRILINTA) [Concomitant]
  8. (CEFTRIAXONE) [Concomitant]
  9. (NEULASTA) [Concomitant]

REACTIONS (1)
  - Chills [None]

NARRATIVE: CASE EVENT DATE: 20131120
